FAERS Safety Report 7130630-8 (Version None)
Quarter: 2010Q4

REPORT INFORMATION
  Report Type: 
  Country: None (occurrence: None)
  Receive Date: 20101029
  Receipt Date: 20100621
  Transmission Date: 20110411
  Serious: No
  Sender: FDA-Public Use
  Company Number: US-002322

PATIENT
  Sex: Male

DRUGS (8)
  1. FIRMAGON [Suspect]
     Indication: PRODUCT USED FOR UNKNOWN INDICATION
     Dosage: (240 MG MG 1X/MONTH SUBCUTANEOUS
     Route: 058
     Dates: start: 20100513, end: 20100513
  2. RESTORIL /00393701/ [Concomitant]
  3. DESYREL [Concomitant]
  4. OXYBUTIN [Concomitant]
  5. GLUCOPHAGE [Concomitant]
  6. CRESTOR [Concomitant]
  7. ZOCOR [Concomitant]
  8. ZESTRIL [Concomitant]

REACTIONS (4)
  - INJECTION SITE ERYTHEMA [None]
  - INJECTION SITE NODULE [None]
  - INJECTION SITE PAIN [None]
  - INJECTION SITE WARMTH [None]
